FAERS Safety Report 4402951-0 (Version None)
Quarter: 2004Q3

REPORT INFORMATION
  Report Type: 
  Country: None (occurrence: None)
  Receive Date: 20040721
  Receipt Date: 20030709
  Transmission Date: 20050211
  Serious: No
  Sender: FDA-Public Use
  Company Number: US-GLAXOSMITHKLINE-A0416387A

PATIENT
  Age: 68 Year
  Sex: Female

DRUGS (3)
  1. IMITREX [Suspect]
     Indication: MIGRAINE
     Route: 048
     Dates: start: 20010101
  2. NEURONTIN [Concomitant]
     Route: 065
  3. ELAVIL [Concomitant]
     Dosage: 150MG UNKNOWN
     Route: 065

REACTIONS (2)
  - CHEST DISCOMFORT [None]
  - CHEST PAIN [None]
